FAERS Safety Report 15289667 (Version 1)
Quarter: 2018Q3

REPORT INFORMATION
  Report Type: Spontaneous
  Country: US (occurrence: US)
  Receive Date: 20180803
  Receipt Date: 20180803
  Transmission Date: 20181010
  Serious: No
  Sender: FDA-Public Use
  Company Number: None

PATIENT
  Age: 73 Year
  Sex: Female
  Weight: 70.2 kg

DRUGS (6)
  1. HCTZ [Concomitant]
     Active Substance: HYDROCHLOROTHIAZIDE
  2. ATORVASTATIN [Concomitant]
     Active Substance: ATORVASTATIN
  3. VALSARTAN 40 MG TABLETS (GENERIC FOR DIOVAN 40 MG) [Suspect]
     Active Substance: VALSARTAN
     Indication: BLOOD PRESSURE MANAGEMENT
     Dosage: ?          QUANTITY:60 TABLET(S);?
     Route: 048
  4. CELEBREX [Concomitant]
     Active Substance: CELECOXIB
  5. METOPROLOL. [Concomitant]
     Active Substance: METOPROLOL
  6. GABAPENTIN. [Concomitant]
     Active Substance: GABAPENTIN

REACTIONS (5)
  - Fatigue [None]
  - Product use issue [None]
  - Feeling abnormal [None]
  - Diarrhoea [None]
  - Abdominal pain upper [None]

NARRATIVE: CASE EVENT DATE: 20180510
